FAERS Safety Report 20704715 (Version 5)
Quarter: 2022Q2

REPORT INFORMATION
  Report Type: Spontaneous
  Country: JP (occurrence: JP)
  Receive Date: 20220413
  Receipt Date: 20220520
  Transmission Date: 20220721
  Serious: Yes (Life-Threatening, Other)
  Sender: FDA-Public Use
  Company Number: JP-MSD-2204JPN000550J

PATIENT
  Age: 82 Year
  Sex: Male
  Weight: 60 kg

DRUGS (14)
  1. BRIDION [Suspect]
     Active Substance: SUGAMMADEX
     Indication: Neuromuscular blockade reversal
     Dosage: 200 MILLIGRAM, ONCE
     Route: 042
     Dates: start: 20210812, end: 20210812
  2. REMIFENTANIL HYDROCHLORIDE [Concomitant]
     Active Substance: REMIFENTANIL HYDROCHLORIDE
     Indication: Sedative therapy
     Dosage: UNK
     Route: 042
     Dates: start: 20210812, end: 20210812
  3. ROCURONIUM BROMIDE [Concomitant]
     Active Substance: ROCURONIUM BROMIDE
     Indication: Sedative therapy
     Dosage: UNK
     Route: 042
     Dates: start: 20210812, end: 20210812
  4. EPHEDRINE HYDROCHLORIDE [Concomitant]
     Active Substance: EPHEDRINE HYDROCHLORIDE
     Indication: Intraoperative care
     Dosage: UNK
     Route: 042
     Dates: start: 20210812, end: 20210812
  5. PHENYLEPHRINE HYDROCHLORIDE [Concomitant]
     Active Substance: PHENYLEPHRINE HYDROCHLORIDE
     Indication: Sedative therapy
     Dosage: UNK
     Route: 042
     Dates: start: 20210812, end: 20210812
  6. FLOMOXEF SODIUM [Concomitant]
     Active Substance: FLOMOXEF SODIUM
     Indication: Intraoperative care
     Dosage: UNK
     Route: 042
     Dates: start: 20210812, end: 20210818
  7. XYLOCAINE [Concomitant]
     Active Substance: LIDOCAINE HYDROCHLORIDE
     Indication: Sedative therapy
     Dosage: UNK
     Route: 061
     Dates: start: 20210812, end: 20210812
  8. MORPHINE HYDROCHLORIDE [Concomitant]
     Active Substance: MORPHINE HYDROCHLORIDE
     Indication: Sedative therapy
     Dosage: UNK
     Route: 008
     Dates: start: 20210812, end: 20210814
  9. ANAPEINE [Concomitant]
     Active Substance: ROPIVACAINE HYDROCHLORIDE
     Indication: Sedative therapy
     Dosage: UNK
     Route: 008
     Dates: start: 20210812, end: 20210814
  10. DROPERIDOL [Concomitant]
     Active Substance: DROPERIDOL
     Indication: Sedative therapy
     Dosage: UNK
     Route: 008
     Dates: start: 20210812, end: 20210814
  11. MAGCOROL [MAGNESIUM CITRATE] [Concomitant]
     Indication: Preoperative care
     Dosage: UNK
     Route: 048
     Dates: start: 20210811, end: 20210811
  12. SENNA LEAF\SENNOSIDES\SENNOSIDES A AND B [Concomitant]
     Active Substance: SENNA LEAF\SENNOSIDES\SENNOSIDES A AND B
     Indication: Preoperative care
     Dosage: UNK
     Route: 048
     Dates: start: 20210811, end: 20210811
  13. SODIUM PICOSULFATE [Concomitant]
     Active Substance: SODIUM PICOSULFATE
     Indication: Preoperative care
     Dosage: UNK
     Route: 048
     Dates: start: 20210806
  14. MAGNESIUM OXIDE [Concomitant]
     Active Substance: MAGNESIUM OXIDE
     Indication: Constipation
     Dosage: UNK
     Route: 048

REACTIONS (2)
  - Anaphylactic shock [Recovered/Resolved]
  - Cardiac arrest [Recovered/Resolved]

NARRATIVE: CASE EVENT DATE: 20210812
